FAERS Safety Report 12961870 (Version 10)
Quarter: 2019Q1

REPORT INFORMATION
  Report Type: Spontaneous
  Country: US (occurrence: US)
  Receive Date: 20161121
  Receipt Date: 20190311
  Transmission Date: 20190417
  Serious: Yes (Hospitalization)
  Sender: FDA-Public Use
  Company Number: US-ACTELION-A-NJ2016-145732

PATIENT
  Age: 61 Year
  Sex: Male
  Weight: 88.44 kg

DRUGS (4)
  1. SILDENAFIL. [Concomitant]
     Active Substance: SILDENAFIL
  2. VELETRI [Suspect]
     Active Substance: EPOPROSTENOL
     Indication: PULMONARY HYPERTENSION
     Dosage: 26.8 NG/KG, PER MIN
     Route: 042
     Dates: start: 20151119
  3. VELETRI [Suspect]
     Active Substance: EPOPROSTENOL
     Dosage: 26.8 NG/KG, PER MIN
     Route: 042
     Dates: start: 20151119
  4. OPSUMIT [Suspect]
     Active Substance: MACITENTAN
     Indication: PULMONARY HYPERTENSION
     Dosage: 10 MG, QD
     Route: 048
     Dates: start: 20151217

REACTIONS (13)
  - Pain in jaw [Not Recovered/Not Resolved]
  - Flushing [Unknown]
  - Condition aggravated [Unknown]
  - Headache [Unknown]
  - Arthralgia [Unknown]
  - Productive cough [Unknown]
  - Diarrhoea [Unknown]
  - Catheter management [Unknown]
  - Sinus congestion [Unknown]
  - Dyspnoea [Unknown]
  - Catheter site infection [Unknown]
  - Pneumonia [Unknown]
  - Dyspnoea exertional [Not Recovered/Not Resolved]

NARRATIVE: CASE EVENT DATE: 201802
